FAERS Safety Report 5915852-3 (Version None)
Quarter: 2008Q4

REPORT INFORMATION
  Report Type: 
  Country: None (occurrence: None)
  Receive Date: 20081010
  Receipt Date: 20080929
  Transmission Date: 20090506
  Serious: Yes (Hospitalization)
  Sender: FDA-Public Use
  Company Number: JP-PFIZER INC-2008082485

PATIENT
  Age: 72 Year
  Sex: Female

DRUGS (3)
  1. FARMORUBICIN [Suspect]
     Indication: BREAST CANCER
     Dosage: DAILY DOSE:150MG
     Route: 042
     Dates: start: 20080819, end: 20080901
  2. FLUOROURACIL [Suspect]
     Indication: BREAST CANCER
     Route: 042
     Dates: start: 20080819, end: 20080901
  3. ENDOXAN [Suspect]
     Indication: BREAST CANCER
     Dosage: DAILY DOSE:750MG
     Route: 042
     Dates: start: 20080819, end: 20080901

REACTIONS (1)
  - INTERSTITIAL LUNG DISEASE [None]
